FAERS Safety Report 22220017 (Version 2)
Quarter: 2023Q4

REPORT INFORMATION
  Report Type: Spontaneous
  Country: US (occurrence: US)
  Receive Date: 20230417
  Receipt Date: 20231016
  Transmission Date: 20240110
  Serious: No
  Sender: FDA-Public Use
  Company Number: US-BRISTOL-MYERS SQUIBB COMPANY-2023-053970

PATIENT
  Age: 66 Year
  Sex: Male

DRUGS (3)
  1. REVLIMID [Suspect]
     Active Substance: LENALIDOMIDE
     Indication: Plasma cell myeloma
     Dosage: FREQ: 21 DAYS
     Route: 048
     Dates: start: 20220929
  2. CALCIUM [Concomitant]
     Active Substance: CALCIUM
     Indication: Product used for unknown indication
  3. TUMS CHEWIES [Concomitant]
     Indication: Product used for unknown indication
     Dosage: BITES BERRY 32

REACTIONS (1)
  - Paraesthesia ear [Unknown]

NARRATIVE: CASE EVENT DATE: 20230201
